FAERS Safety Report 5626219-X (Version None)
Quarter: 2008Q1

REPORT INFORMATION
  Report Type: 
  Country: None (occurrence: None)
  Receive Date: 20080214
  Receipt Date: 20080205
  Transmission Date: 20080703
  Serious: Yes (Death)
  Sender: FDA-Public Use
  Company Number: B0504178A

PATIENT
  Age: 67 Year
  Sex: Male
  Weight: 105 kg

DRUGS (8)
  1. AVANDIA [Suspect]
     Route: 065
     Dates: start: 20050721, end: 20071015
  2. METFORMIN HCL [Concomitant]
  3. SULPHONYLUREA [Concomitant]
  4. BENDROFLUMETHIAZID [Concomitant]
     Dosage: 2.5MG PER DAY
  5. RAMIPRIL [Concomitant]
     Dosage: 10MG PER DAY
  6. WARFARIN SODIUM [Concomitant]
  7. ORLISTAT [Concomitant]
  8. SIMVASTATIN [Concomitant]
     Dosage: 40MG PER DAY

REACTIONS (1)
  - ISCHAEMIA [None]
